FAERS Safety Report 15791456 (Version 1)
Quarter: 2019Q1

REPORT INFORMATION
  Report Type: Spontaneous
  Country: None (occurrence: JP)
  Receive Date: 20190104
  Receipt Date: 20190104
  Transmission Date: 20190417
  Serious: Yes (Death, Hospitalization)
  Sender: FDA-Public Use
  Company Number: JP-VIFOR (INTERNATIONAL) INC.-VIT-2019-00004

PATIENT
  Age: 87 Year
  Sex: Female

DRUGS (2)
  1. MIRCERA [Suspect]
     Active Substance: METHOXY POLYETHYLENE GLYCOL-EPOETIN BETA
     Indication: ANAEMIA
     Route: 065
  2. MIRCERA [Suspect]
     Active Substance: METHOXY POLYETHYLENE GLYCOL-EPOETIN BETA
     Indication: MYELODYSPLASTIC SYNDROME

REACTIONS (12)
  - Intentional product use issue [Unknown]
  - Neutrophil count increased [Unknown]
  - Gastric cancer [Unknown]
  - Anaemia [Unknown]
  - Blood count abnormal [Unknown]
  - Abdominal lymphadenopathy [Unknown]
  - Pyrexia [Unknown]
  - Fall [Fatal]
  - Cancer pain [Unknown]
  - Gastric mucosal hypertrophy [Unknown]
  - Off label use [Unknown]
  - Pain in extremity [Unknown]
